FAERS Safety Report 21847000 (Version 10)
Quarter: 2023Q2

REPORT INFORMATION
  Report Type: Report from Study
  Country: CH (occurrence: CH)
  Receive Date: 20230111
  Receipt Date: 20230622
  Transmission Date: 20230722
  Serious: Yes (Hospitalization, Other)
  Sender: FDA-Public Use
  Company Number: CH-ABBVIE-4265281

PATIENT
  Age: 81 Year
  Sex: Male

DRUGS (5)
  1. CARBIDOPA\LEVODOPA [Suspect]
     Active Substance: CARBIDOPA\LEVODOPA
     Indication: Parkinson^s disease
     Dosage: MD: 7.5 ML, CRD: 3.1 ML/H, ED: 1 ML
     Route: 050
     Dates: start: 20221130, end: 20221201
  2. CARBIDOPA\LEVODOPA [Suspect]
     Active Substance: CARBIDOPA\LEVODOPA
     Dosage: MD: 7.5 ML, CRD: 2.2 ML/H, ED: 1 ML; FREQUENCY TEXT: 16H THERAPY?PUMP GIVES AN OVERPRESSURE ALARM...
     Route: 050
     Dates: start: 20221129, end: 20221130
  3. CARBIDOPA\LEVODOPA [Suspect]
     Active Substance: CARBIDOPA\LEVODOPA
     Dosage: MD: 7.5 ML, CRD: 3.1 ML/H, ED: 1 ML
     Route: 050
     Dates: start: 20221205
  4. CARBIDOPA\LEVODOPA [Suspect]
     Active Substance: CARBIDOPA\LEVODOPA
     Dosage: MD: 7.5 ML, CRD: 3.2 ML/H, ED: 1 ML; FREQUENCY TEXT: 16H THERAPY
     Route: 050
     Dates: start: 20221201, end: 20221202
  5. CARBIDOPA\LEVODOPA [Suspect]
     Active Substance: CARBIDOPA\LEVODOPA
     Dosage: MD: 7.5 ML, CRD: 3.0 ML/H, ED: 1 ML
     Route: 050
     Dates: start: 20221202, end: 20221205

REACTIONS (16)
  - Spinal fracture [Recovered/Resolved]
  - Walking aid user [Not Recovered/Not Resolved]
  - Stoma site discharge [Not Recovered/Not Resolved]
  - Confusional state [Recovered/Resolved]
  - Spinal decompression [Recovered/Resolved]
  - Mobility decreased [Recovering/Resolving]
  - Stoma site erythema [Not Recovered/Not Resolved]
  - Freezing phenomenon [Recovered/Resolved]
  - Spinal corpectomy [Recovered/Resolved]
  - Device alarm issue [Recovered/Resolved]
  - Device issue [Recovered/Resolved]
  - Muscular weakness [Not Recovered/Not Resolved]
  - Spinal fracture [Not Recovered/Not Resolved]
  - Surgery [Recovered/Resolved]
  - Surgery [Recovering/Resolving]
  - Pain [Not Recovered/Not Resolved]

NARRATIVE: CASE EVENT DATE: 20230101
